FAERS Safety Report 8419469 (Version 2)
Quarter: 2012Q4

REPORT INFORMATION
  Report Type: 
  Country: JP (occurrence: JP)
  Receive Date: 20120221
  Receipt Date: 20121015
  Transmission Date: 20130627
  Serious: Yes (Other)
  Sender: FDA-Public Use
  Company Number: JP-GE HEALTHCARE MEDICAL DIAGNOSTICS-OSCN-NO-0810L-0592

PATIENT
  Age: 66 None
  Sex: Male

DRUGS (9)
  1. OMNISCAN [Suspect]
     Indication: PERIPHERAL ISCHAEMIA
     Route: 042
     Dates: start: 20011211, end: 20011211
  2. OMNISCAN [Suspect]
     Indication: DIAGNOSTIC PROCEDURE
     Route: 042
     Dates: start: 20011218, end: 20011218
  3. OMNISCAN [Suspect]
     Route: 042
     Dates: start: 20030430, end: 20030430
  4. MAGNEVIST (GADOPENTETATE DIMEGLUMINE) [Concomitant]
     Dates: start: 20030225, end: 20030225
  5. CALCIUM CARBONATE (CALTAN) [Concomitant]
  6. CEFDINIR (CEFZON) [Concomitant]
     Dates: start: 20011207, end: 20011213
  7. AMPICILLIN SODIUM W/SULBACTAM SODIUM (UNASYN S) [Concomitant]
     Dates: start: 20011213, end: 20011214
  8. CEFTAZIDIME (MODACIN) [Concomitant]
     Dates: start: 20011215, end: 20011221
  9. CEFOTIAM HYDROCHLORIDE (PANSPORIN) [Concomitant]
     Dates: start: 20030502, end: 20030509

REACTIONS (9)
  - Nephrogenic systemic fibrosis [Not Recovered/Not Resolved]
  - Scleroderma [Not Recovered/Not Resolved]
  - Pigmentation disorder [Not Recovered/Not Resolved]
  - Oedema peripheral [Not Recovered/Not Resolved]
  - Skin hypertrophy [Not Recovered/Not Resolved]
  - Biopsy skin abnormal [Not Recovered/Not Resolved]
  - White blood cell count decreased [None]
  - Platelet count decreased [None]
  - Haemoglobin decreased [None]
